FAERS Safety Report 21935933 (Version 1)
Quarter: 2023Q1

REPORT INFORMATION
  Report Type: Spontaneous
  Country: AT (occurrence: None)
  Receive Date: 20230201
  Receipt Date: 20230201
  Transmission Date: 20230418
  Serious: Yes (Other)
  Sender: FDA-Public Use
  Company Number: 2022A018700

PATIENT
  Age: 922 Month
  Sex: Female

DRUGS (5)
  1. FASENRA [Suspect]
     Active Substance: BENRALIZUMAB
     Indication: Asthma
     Route: 030
     Dates: start: 202101
  2. PAROXETINE HYDROCHLORIDE [Concomitant]
     Active Substance: PAROXETINE HYDROCHLORIDE
     Dates: start: 2007
  3. VOLTARIN [Concomitant]
  4. SERAKTIL [Concomitant]
  5. PARCAMED [Concomitant]

REACTIONS (3)
  - Road traffic accident [Unknown]
  - Fracture [Unknown]
  - Arthralgia [Recovered/Resolved]

NARRATIVE: CASE EVENT DATE: 20210201
